FAERS Safety Report 6153619-4 (Version None)
Quarter: 2009Q2

REPORT INFORMATION
  Report Type: 
  Country: None (occurrence: None)
  Receive Date: 20090409
  Receipt Date: 20090327
  Transmission Date: 20091009
  Serious: Yes (Death, Hospitalization, Other)
  Sender: FDA-Public Use
  Company Number: 2009-01246

PATIENT
  Age: 67 Year
  Sex: Female
  Weight: 80 kg

DRUGS (3)
  1. VELCADE [Suspect]
     Indication: MULTIPLE MYELOMA
     Dosage: 2.3 MGINTRAVENOUS
     Route: 042
     Dates: start: 20090201, end: 20090301
  2. MEDROL [Concomitant]
  3. INVANZ (ERTAPENEM SODIUM) [Concomitant]

REACTIONS (3)
  - LARGE INTESTINAL ULCER [None]
  - PNEUMONIA [None]
  - RENAL FAILURE ACUTE [None]
